FAERS Safety Report 8298360-7 (Version None)
Quarter: 2012Q2

REPORT INFORMATION
  Report Type: 
  Country: None (occurrence: None)
  Receive Date: 20120419
  Receipt Date: 20120417
  Transmission Date: 20120825
  Serious: Yes (Other)
  Sender: FDA-Public Use
  Company Number: US-PFIZER INC-2012095381

PATIENT
  Sex: Female
  Weight: 72.562 kg

DRUGS (6)
  1. CHANTIX [Suspect]
     Dosage: 0.5 MG, 2X/DAY
     Route: 048
     Dates: end: 20120416
  2. SOMA [Concomitant]
     Indication: PAIN
     Dosage: UNK
  3. CELEBREX [Concomitant]
     Indication: ARTHRITIS
     Dosage: UNK
  4. NORCO [Concomitant]
     Indication: SPONDYLITIS
  5. NORCO [Concomitant]
     Indication: ARTHRITIS
     Dosage: UNK
  6. CHANTIX [Suspect]
     Indication: SMOKING CESSATION THERAPY
     Dosage: 0.5 MG, 1X/DAY
     Route: 048
     Dates: start: 20120410

REACTIONS (6)
  - TONGUE DISORDER [None]
  - SWOLLEN TONGUE [None]
  - GLOSSODYNIA [None]
  - THIRST [None]
  - HYPOAESTHESIA ORAL [None]
  - DYSGEUSIA [None]
